FAERS Safety Report 21905006 (Version 1)
Quarter: 2023Q1

REPORT INFORMATION
  Report Type: Spontaneous
  Country: GT (occurrence: GT)
  Receive Date: 20230124
  Receipt Date: 20230124
  Transmission Date: 20230418
  Serious: Yes (Death)
  Sender: FDA-Public Use
  Company Number: GT-JNJFOC-20230135319

PATIENT

DRUGS (4)
  1. VELCADE [Suspect]
     Active Substance: BORTEZOMIB
     Indication: Product used for unknown indication
     Route: 065
  2. DARZALEX [Suspect]
     Active Substance: DARATUMUMAB
     Indication: Product used for unknown indication
     Route: 065
  3. MELPHALAN [Suspect]
     Active Substance: MELPHALAN
     Indication: Product used for unknown indication
     Route: 065
  4. PREDNISONE [Suspect]
     Active Substance: PREDNISONE
     Indication: Product used for unknown indication
     Route: 065

REACTIONS (1)
  - COVID-19 [Fatal]
